FAERS Safety Report 4683665-9 (Version None)
Quarter: 2005Q2

REPORT INFORMATION
  Report Type: 
  Country: None (occurrence: None)
  Receive Date: 20050602
  Receipt Date: 20050208
  Transmission Date: 20051028
  Serious: No
  Sender: FDA-Public Use
  Company Number: USA041286163

PATIENT
  Sex: Female
  Weight: 95 kg

DRUGS (4)
  1. CYMBALTA [Suspect]
     Indication: DEPRESSION
     Dosage: 60 MG DAY
     Dates: start: 20041020, end: 20041114
  2. PULMICORT [Concomitant]
  3. ALLEGRA D 24 HOUR [Concomitant]
  4. NEXIUM [Concomitant]

REACTIONS (3)
  - AGITATION [None]
  - ANXIETY [None]
  - MIGRAINE [None]
